FAERS Safety Report 8817931 (Version 7)
Quarter: 2014Q2

REPORT INFORMATION
  Report Type: Report from Study
  Country: PL (occurrence: PL)
  Receive Date: 20121001
  Receipt Date: 20140529
  Transmission Date: 20141212
  Serious: Yes (Hospitalization)
  Sender: FDA-Public Use
  Company Number: PL-EISAI INC-E7389-03045-CLI-PL

PATIENT
  Age: 61 Year
  Sex: Male
  Weight: 98 kg

DRUGS (1)
  1. E7389 (BOLD) [Suspect]
     Indication: NON-SMALL CELL LUNG CANCER
     Route: 041
     Dates: start: 20120911, end: 20120911

REACTIONS (1)
  - Pneumonia [Recovered/Resolved]
